FAERS Safety Report 10175787 (Version 2)
Quarter: 2014Q2

REPORT INFORMATION
  Report Type: Spontaneous
  Country: JP (occurrence: JP)
  Receive Date: 20140516
  Receipt Date: 20140604
  Transmission Date: 20141212
  Serious: Yes (Other)
  Sender: FDA-Public Use
  Company Number: JP-ASTRAZENECA-2014SE32171

PATIENT
  Age: 63 Year
  Sex: Female
  Weight: 53 kg

DRUGS (6)
  1. CRESTOR [Suspect]
     Indication: HYPERLIPIDAEMIA
     Route: 048
     Dates: start: 20140328, end: 20140413
  2. AMLODIN OD [Concomitant]
     Route: 048
     Dates: start: 20081009, end: 20130126
  3. AMLODIN OD [Concomitant]
     Route: 048
     Dates: start: 20130127, end: 20130608
  4. AMLODIN OD [Concomitant]
     Route: 048
     Dates: start: 20130609
  5. BLOPRESS [Concomitant]
     Dates: start: 20051130, end: 20081008
  6. TENORMIN [Concomitant]
     Dates: start: 20060209, end: 20081008

REACTIONS (3)
  - Erythema multiforme [Recovering/Resolving]
  - Myalgia [Unknown]
  - Arthralgia [Unknown]
